FAERS Safety Report 9870659 (Version 1)
Quarter: 2014Q1

REPORT INFORMATION
  Report Type: Spontaneous
  Country: BR (occurrence: BR)
  Receive Date: 20140205
  Receipt Date: 20140205
  Transmission Date: 20141002
  Serious: Yes (Death, Other)
  Sender: FDA-Public Use
  Company Number: BR-PFIZER INC-2014031619

PATIENT
  Age: 84 Year
  Sex: Male

DRUGS (1)
  1. LIPITOR [Suspect]
     Dosage: 20 MG (TWO TABLETS OF 10 MG), 1X/DAY
     Route: 048
     Dates: start: 20130913

REACTIONS (1)
  - Neoplasm malignant [Fatal]
